FAERS Safety Report 9397974 (Version 1)
Quarter: 2013Q3

REPORT INFORMATION
  Report Type: Spontaneous
  Country: US (occurrence: US)
  Receive Date: 20130712
  Receipt Date: 20130712
  Transmission Date: 20140515
  Serious: Yes (Hospitalization)
  Sender: FDA-Public Use
  Company Number: US-GLAXOSMITHKLINE-A1030358A

PATIENT
  Age: 78 Year
  Sex: Female

DRUGS (6)
  1. ADVAIR [Suspect]
     Indication: CHRONIC OBSTRUCTIVE PULMONARY DISEASE
     Dosage: 1PUFF TWICE PER DAY
     Route: 055
  2. OXYGEN [Concomitant]
  3. SPIRIVA [Concomitant]
  4. THEOPHYLLINE [Concomitant]
  5. MONTELUKAST [Concomitant]
  6. BENAZEPRIL [Concomitant]

REACTIONS (1)
  - Dyspnoea exertional [Not Recovered/Not Resolved]
